FAERS Safety Report 20006402 (Version 1)
Quarter: 2021Q4

REPORT INFORMATION
  Report Type: Spontaneous
  Country: US (occurrence: US)
  Receive Date: 20211028
  Receipt Date: 20211028
  Transmission Date: 20220303
  Serious: Yes (Hospitalization, Other)
  Sender: FDA-Public Use
  Company Number: US-CIPLA LTD.-2021US07067

PATIENT

DRUGS (1)
  1. GEMCITABINE [Suspect]
     Active Substance: GEMCITABINE
     Indication: Pancreatic carcinoma metastatic
     Dosage: UNK, 6 CYCLES
     Route: 065

REACTIONS (7)
  - Cardiotoxicity [Recovering/Resolving]
  - Ventricular hypokinesia [Recovering/Resolving]
  - Cardiomyopathy acute [Recovering/Resolving]
  - Sinus tachycardia [Recovering/Resolving]
  - Pleural effusion [Recovering/Resolving]
  - Hypervolaemia [Recovering/Resolving]
  - Pulmonary oedema [Recovering/Resolving]
